FAERS Safety Report 9915998 (Version 1)
Quarter: 2014Q1

REPORT INFORMATION
  Report Type: Spontaneous
  Country: KR (occurrence: None)
  Receive Date: 20140219
  Receipt Date: 20140219
  Transmission Date: 20141002
  Serious: Yes (Other)
  Sender: FDA-Public Use
  Company Number: KAD201402-000241

PATIENT
  Age: 62 Year
  Sex: Female

DRUGS (4)
  1. RIBAVIRIN [Suspect]
     Indication: CHRONIC HEPATITIS C
     Dosage: 800 MG/DAY
  2. PEGINTERFERON AFLA-2B [Suspect]
     Indication: CHRONIC HEPATITIS C
     Dosage: 80 MCG / WEEK
  3. PROPYLTHIOURACIL [Suspect]
     Indication: HYPERTHYROIDISM
  4. PROPRANOLOL [Suspect]
     Indication: HYPERTHYROIDISM

REACTIONS (3)
  - Autoimmune thyroiditis [None]
  - Agranulocytosis [None]
  - Pyrexia [None]
